FAERS Safety Report 5363847-3 (Version None)
Quarter: 2007Q2

REPORT INFORMATION
  Report Type: 
  Country: None (occurrence: None)
  Receive Date: 20070530
  Receipt Date: 20070105
  Transmission Date: 20071010
  Serious: No
  Sender: FDA-Public Use
  Company Number: 2007PV027998

PATIENT
  Age: 52 Year
  Sex: Male

DRUGS (3)
  1. BYETTA [Suspect]
     Indication: DIABETES MELLITUS NON-INSULIN-DEPENDENT
     Dosage: 5 MCG;BID;SC, 5 MCG;BID;SC, 10 MCG;BID;SC
     Route: 058
     Dates: start: 20060201, end: 20060101
  2. BYETTA [Suspect]
     Indication: DIABETES MELLITUS NON-INSULIN-DEPENDENT
     Dosage: 5 MCG;BID;SC, 5 MCG;BID;SC, 10 MCG;BID;SC
     Route: 058
     Dates: end: 20061001
  3. BYETTA [Suspect]
     Indication: DIABETES MELLITUS NON-INSULIN-DEPENDENT
     Dosage: 5 MCG;BID;SC, 5 MCG;BID;SC, 10 MCG;BID;SC
     Route: 058
     Dates: start: 20061201

REACTIONS (3)
  - ALOPECIA [None]
  - CONSTIPATION [None]
  - PROSTATE INFECTION [None]
